FAERS Safety Report 18566938 (Version 1)
Quarter: 2020Q4

REPORT INFORMATION
  Report Type: Spontaneous
  Country: HU (occurrence: HU)
  Receive Date: 20201201
  Receipt Date: 20201201
  Transmission Date: 20210114
  Serious: Yes (Other)
  Sender: FDA-Public Use
  Company Number: HU-INCYTE CORPORATION-2020IN011943

PATIENT

DRUGS (1)
  1. JAKAVI [Suspect]
     Active Substance: RUXOLITINIB
     Indication: SQUAMOUS CELL CARCINOMA
     Dosage: 5 MG 2X
     Route: 065
     Dates: start: 202001, end: 202009

REACTIONS (9)
  - Metastases to bone [Unknown]
  - Product use in unapproved indication [Unknown]
  - Neoplasm progression [Unknown]
  - Tumour haemorrhage [Unknown]
  - Skin squamous cell carcinoma recurrent [Unknown]
  - Secretion discharge [Unknown]
  - Splenomegaly [Unknown]
  - Skin lesion [Unknown]
  - Polycythaemia vera [Unknown]

NARRATIVE: CASE EVENT DATE: 2020
